FAERS Safety Report 20642934 (Version 3)
Quarter: 2022Q4

REPORT INFORMATION
  Report Type: Spontaneous
  Country: DE (occurrence: DE)
  Receive Date: 20220328
  Receipt Date: 20221011
  Transmission Date: 20230113
  Serious: Yes (Hospitalization)
  Sender: FDA-Public Use
  Company Number: DE-DCGMA-21192383

PATIENT
  Age: 78 Year
  Sex: Male

DRUGS (4)
  1. DYSPORT [Suspect]
     Active Substance: ABOBOTULINUMTOXINA
     Indication: Facial spasm
     Dosage: DOSE NOT REPORTED
     Route: 058
     Dates: start: 20210520, end: 20210520
  2. LOSARTAN [Concomitant]
     Active Substance: LOSARTAN
     Dosage: DAILY DOSE: 12.5 MG MILLGRAM(S) EVERY DAYS
  3. ALLOPURINOL [Concomitant]
     Active Substance: ALLOPURINOL
     Dosage: DAILY DOSE: 100 MG MILLGRAM(S) EVERY DAYS
  4. METOPROLOL SUCCINATE [Concomitant]
     Active Substance: METOPROLOL SUCCINATE
     Dosage: DAILY DOSE: 47.5 MG MILLGRAM(S) EVERY DAYS 2 SEPARATED DOSES

REACTIONS (6)
  - Vasculitis [Not Recovered/Not Resolved]
  - Hepatic enzyme increased [Not Recovered/Not Resolved]
  - Myelosuppression [Not Recovered/Not Resolved]
  - Pancytopenia [Not Recovered/Not Resolved]
  - Pyrexia [Not Recovered/Not Resolved]
  - Diarrhoea [Not Recovered/Not Resolved]

NARRATIVE: CASE EVENT DATE: 20210526
